FAERS Safety Report 25204322 (Version 1)
Quarter: 2025Q2

REPORT INFORMATION
  Report Type: Report from Study
  Country: US (occurrence: US)
  Receive Date: 20250416
  Receipt Date: 20250416
  Transmission Date: 20250717
  Serious: Yes (Hospitalization)
  Sender: EISAI
  Company Number: US-Eisai-EC-2025-185074

PATIENT
  Age: 76 Year
  Sex: Female
  Weight: 82 kg

DRUGS (11)
  1. LENVIMA [Suspect]
     Active Substance: LENVATINIB
     Indication: Thyroid cancer
     Dates: start: 20250220, end: 20250316
  2. LENVIMA [Suspect]
     Active Substance: LENVATINIB
     Dates: start: 202503
  3. ASPIRIN [Concomitant]
     Active Substance: ASPIRIN
  4. FARXIGA [Concomitant]
     Active Substance: DAPAGLIFLOZIN PROPANEDIOL
  5. FISH OIL [Concomitant]
     Active Substance: FISH OIL
  6. INSULIN LISPRO [Concomitant]
     Active Substance: INSULIN LISPRO
  7. LANTUS SOLOSTAR [Concomitant]
     Active Substance: INSULIN GLARGINE
  8. LEVOTHYROXINE [Concomitant]
     Active Substance: LEVOTHYROXINE
  9. MOUNJARO [Concomitant]
     Active Substance: TIRZEPATIDE
  10. MINERALS\VITAMINS [Concomitant]
     Active Substance: MINERALS\VITAMINS
  11. OraMagic Plus Mouth/Throat [Concomitant]

REACTIONS (4)
  - Renal disorder [Recovering/Resolving]
  - Urinary tract disorder [Unknown]
  - Blood pressure increased [Not Recovered/Not Resolved]
  - Aphthous ulcer [Not Recovered/Not Resolved]

NARRATIVE: CASE EVENT DATE: 20250101
